FAERS Safety Report 15507315 (Version 4)
Quarter: 2019Q2

REPORT INFORMATION
  Report Type: Spontaneous
  Country: US (occurrence: US)
  Receive Date: 20181016
  Receipt Date: 20190430
  Transmission Date: 20190711
  Serious: Yes (Other)
  Sender: FDA-Public Use
  Company Number: US-JNJFOC-20181013114

PATIENT
  Age: 55 Year
  Sex: Female
  Weight: 102.97 kg

DRUGS (10)
  1. XARELTO [Suspect]
     Active Substance: RIVAROXABAN
     Indication: COAGULOPATHY
     Route: 048
     Dates: start: 20180713, end: 20180820
  2. XARELTO [Suspect]
     Active Substance: RIVAROXABAN
     Indication: ANTIPHOSPHOLIPID ANTIBODIES
     Route: 048
     Dates: start: 20180713, end: 20180820
  3. XARELTO [Suspect]
     Active Substance: RIVAROXABAN
     Indication: ANTIPHOSPHOLIPID ANTIBODIES
     Route: 048
  4. XARELTO [Suspect]
     Active Substance: RIVAROXABAN
     Indication: SPLENIC INFARCTION
     Route: 048
     Dates: start: 20180920
  5. ESCITALOPRAM [Concomitant]
     Active Substance: ESCITALOPRAM OXALATE
     Indication: DEPRESSION
     Dosage: MORNING
     Route: 065
     Dates: start: 2011
  6. XARELTO [Suspect]
     Active Substance: RIVAROXABAN
     Indication: SPLENIC INFARCTION
     Route: 048
  7. XARELTO [Suspect]
     Active Substance: RIVAROXABAN
     Indication: SPLENIC INFARCTION
     Route: 048
     Dates: start: 20180713, end: 20180820
  8. XARELTO [Suspect]
     Active Substance: RIVAROXABAN
     Indication: ANTIPHOSPHOLIPID ANTIBODIES
     Route: 048
     Dates: start: 20180920
  9. XARELTO [Suspect]
     Active Substance: RIVAROXABAN
     Indication: COAGULOPATHY
     Route: 048
  10. XARELTO [Suspect]
     Active Substance: RIVAROXABAN
     Indication: COAGULOPATHY
     Route: 048
     Dates: start: 20180920

REACTIONS (2)
  - Eye haemorrhage [Recovering/Resolving]
  - Retinal detachment [Recovered/Resolved]

NARRATIVE: CASE EVENT DATE: 20180820
